FAERS Safety Report 19028094 (Version 1)
Quarter: 2021Q1

REPORT INFORMATION
  Report Type: Spontaneous
  Country: GB (occurrence: GB)
  Receive Date: 20210319
  Receipt Date: 20210319
  Transmission Date: 20210420
  Serious: Yes (Other)
  Sender: FDA-Public Use
  Company Number: GB-AUROBINDO-AUR-APL-2021-010833

PATIENT
  Age: 36 Year
  Sex: Male
  Weight: 155 kg

DRUGS (4)
  1. OMEPRAZOLE. [Concomitant]
     Active Substance: OMEPRAZOLE
     Indication: PRODUCT USED FOR UNKNOWN INDICATION
     Dosage: 1 DOSAGE FORM, ONCE A DAY, FOR STOMACH
     Route: 065
     Dates: start: 20190823
  2. FOLIC ACID. [Concomitant]
     Active Substance: FOLIC ACID
     Indication: PRODUCT USED FOR UNKNOWN INDICATION
     Dosage: 1 DOSAGE FORM, ONCE A DAY, EXCPET METHOTEXATE DAY
     Route: 065
     Dates: start: 20190823
  3. NAPROXEN TABLET [Suspect]
     Active Substance: NAPROXEN
     Indication: PAIN
     Dosage: 250 MILLIGRAM, ONCE A DAY
     Route: 065
     Dates: start: 20190903
  4. TIMODINE [Concomitant]
     Indication: PRODUCT USED FOR UNKNOWN INDICATION
     Dosage: 1 DOSAGE FORM, ONCE A DAY, TO BE APPLIED TO THE AFFECTED AREA(S)
     Route: 065
     Dates: start: 20210211

REACTIONS (1)
  - Mouth ulceration [Recovered/Resolved]

NARRATIVE: CASE EVENT DATE: 20210308
